FAERS Safety Report 17736508 (Version 1)
Quarter: 2020Q2

REPORT INFORMATION
  Report Type: Spontaneous
  Country: US (occurrence: US)
  Receive Date: 20200501
  Receipt Date: 20200501
  Transmission Date: 20200714
  Serious: No
  Sender: FDA-Public Use
  Company Number: US-ANIPHARMA-2019-US-024706

PATIENT
  Age: 69 Year
  Sex: Male
  Weight: 136 kg

DRUGS (3)
  1. PROPRANOLOL EXTENDED RELEASE CAPSULES (NON-SPECIFIC) [Suspect]
     Active Substance: PROPRANOLOL HYDROCHLORIDE
     Indication: TREMOR
     Route: 065
  2. ELIQUIS [Suspect]
     Active Substance: APIXABAN
     Route: 048
     Dates: start: 201908
  3. PRIMIDONE. [Suspect]
     Active Substance: PRIMIDONE
     Route: 065

REACTIONS (1)
  - Drug interaction [Unknown]
